FAERS Safety Report 5990063-4 (Version None)
Quarter: 2008Q4

REPORT INFORMATION
  Report Type: 
  Country: None (occurrence: None)
  Receive Date: 20081208
  Receipt Date: 20081124
  Transmission Date: 20090506
  Serious: Yes (Hospitalization)
  Sender: FDA-Public Use
  Company Number: 200814080

PATIENT
  Age: 46 Year
  Sex: Female
  Weight: 104.3273 kg

DRUGS (1)
  1. ZEMAIRA [Suspect]
     Dosage: 5273 MG Q1W IV
     Route: 042
     Dates: start: 20080606

REACTIONS (1)
  - PNEUMONIA FUNGAL [None]
